FAERS Safety Report 9317974 (Version 1)
Quarter: 2013Q2

REPORT INFORMATION
  Report Type: Spontaneous
  Country: US (occurrence: US)
  Receive Date: 20130530
  Receipt Date: 20130530
  Transmission Date: 20140414
  Serious: No
  Sender: FDA-Public Use
  Company Number: US-GLAXOSMITHKLINE-A0998394A

PATIENT
  Age: 44 Year
  Sex: Male

DRUGS (5)
  1. VENTOLIN [Suspect]
     Indication: ASTHMA
     Dosage: 2PUFF AS REQUIRED
     Route: 055
     Dates: start: 2007
  2. PRO-AIR [Concomitant]
  3. PAXIL [Concomitant]
  4. LORAZEPAM [Concomitant]
  5. ADVAIR [Concomitant]

REACTIONS (3)
  - Anxiety [Recovering/Resolving]
  - Drug ineffective [Unknown]
  - Product quality issue [Unknown]
